FAERS Safety Report 7505689-6 (Version None)
Quarter: 2011Q2

REPORT INFORMATION
  Report Type: 
  Country: None (occurrence: None)
  Receive Date: 20110526
  Receipt Date: 20110519
  Transmission Date: 20111010
  Serious: Yes (Other)
  Sender: FDA-Public Use
  Company Number: FR-PFIZER INC-2011108580

PATIENT
  Age: 56 Year
  Sex: Female

DRUGS (2)
  1. ZITHROMAX [Suspect]
     Indication: GENITAL INFECTION FEMALE
     Dosage: 4 DF, SINGLE
     Route: 048
  2. NEBIVOLOL [Concomitant]
     Dosage: 5 MG DAILY

REACTIONS (2)
  - MOUTH HAEMORRHAGE [None]
  - NAUSEA [None]
